FAERS Safety Report 7397119-2 (Version None)
Quarter: 2011Q2

REPORT INFORMATION
  Report Type: 
  Country: None (occurrence: None)
  Receive Date: 20110406
  Receipt Date: 20110329
  Transmission Date: 20111010
  Serious: Yes (Other)
  Sender: FDA-Public Use
  Company Number: A0921343A

PATIENT
  Age: 61 Year
  Sex: Male

DRUGS (1)
  1. TYKERB [Suspect]
     Dosage: 750MGD PER DAY
     Route: 048

REACTIONS (1)
  - METASTATIC NEOPLASM [None]
